FAERS Safety Report 9409620 (Version 1)
Quarter: 2013Q3

REPORT INFORMATION
  Report Type: Spontaneous
  Country: GB (occurrence: GB)
  Receive Date: 20130719
  Receipt Date: 20130719
  Transmission Date: 20140515
  Serious: Yes (Hospitalization)
  Sender: FDA-Public Use
  Company Number: PHHY2013GB074957

PATIENT
  Age: 83 Year
  Sex: Female
  Weight: 80 kg

DRUGS (8)
  1. ZOLEDRONATE [Suspect]
     Indication: OSTEOPOROSIS
  2. AMITRIPTYLINE [Concomitant]
  3. COLECALCIFEROL [Concomitant]
  4. FENTANYL [Concomitant]
  5. LEVOTHYROXINE [Concomitant]
  6. OMEPRAZOLE [Concomitant]
  7. CANDESARTAN [Concomitant]
  8. ROSUVASTATIN [Concomitant]

REACTIONS (4)
  - Renal failure acute [Recovering/Resolving]
  - Polyuria [Unknown]
  - Polydipsia [Unknown]
  - Blood creatinine increased [Unknown]
